FAERS Safety Report 7705469-2 (Version None)
Quarter: 2011Q3

REPORT INFORMATION
  Report Type: 
  Country: None (occurrence: None)
  Receive Date: 20110823
  Receipt Date: 20110823
  Transmission Date: 20111222
  Serious: Yes (Hospitalization)
  Sender: FDA-Public Use
  Company Number: None

PATIENT
  Age: 86 Year
  Sex: Female
  Weight: 63.9572 kg

DRUGS (9)
  1. ALLOPURINOL [Concomitant]
  2. ACETAMINOPHEN [Concomitant]
  3. FERROUS SULFATE TAB [Concomitant]
  4. ENOXAPARIN [Concomitant]
  5. BONDAMUSTINE [Suspect]
     Indication: B-CELL LYMPHOMA
     Dosage: 120MG/M2, DAY 1 + 2 Q21 CYCLE #1
     Dates: start: 20110709, end: 20110801
  6. ALBUTEROL SULFATE AUTOHALER [Concomitant]
  7. RITUXIMAB [Suspect]
     Dosage: 375MG/M2, DAY 1 Q 21 DAY CYCLE #1
     Dates: start: 20110708, end: 20110809
  8. DOCUSATE SODIUM [Concomitant]
  9. FLAGYL [Concomitant]

REACTIONS (1)
  - PYREXIA [None]
